FAERS Safety Report 11592657 (Version 3)
Quarter: 2015Q4

REPORT INFORMATION
  Report Type: Spontaneous
  Country: PE (occurrence: PE)
  Receive Date: 20151005
  Receipt Date: 20151030
  Transmission Date: 20160304
  Serious: Yes (Other)
  Sender: FDA-Public Use
  Company Number: PE-SA-2015SA149843

PATIENT
  Age: 17 Year
  Sex: Male
  Weight: 71.5 kg

DRUGS (1)
  1. FABRAZYME [Suspect]
     Active Substance: AGALSIDASE BETA
     Indication: FABRY^S DISEASE
     Dosage: 2 VIALS
     Route: 041
     Dates: start: 20130422

REACTIONS (1)
  - No adverse event [Unknown]
